FAERS Safety Report 8049611-5 (Version None)
Quarter: 2012Q1

REPORT INFORMATION
  Report Type: 
  Country: None (occurrence: None)
  Receive Date: 20120117
  Receipt Date: 20120110
  Transmission Date: 20120608
  Serious: Yes (Other)
  Sender: FDA-Public Use
  Company Number: US-PFIZER INC-2011157829

PATIENT
  Sex: Female
  Weight: 79.365 kg

DRUGS (3)
  1. NEXIUM [Concomitant]
     Indication: GASTROOESOPHAGEAL REFLUX DISEASE
     Dosage: UNK
  2. CELEBREX [Suspect]
     Indication: ARTHRITIS
     Dosage: 200 MG, 2X/DAY
     Route: 048
     Dates: start: 20110601, end: 20110601
  3. SULFUR [Suspect]
     Dosage: UNK

REACTIONS (6)
  - DRUG HYPERSENSITIVITY [None]
  - RASH GENERALISED [None]
  - DIZZINESS [None]
  - HEPATIC NEOPLASM MALIGNANT [None]
  - KIDNEY INFECTION [None]
  - BLOOD PRESSURE FLUCTUATION [None]
